FAERS Safety Report 17918034 (Version 3)
Quarter: 2020Q3

REPORT INFORMATION
  Report Type: Report from Study
  Country: US (occurrence: US)
  Receive Date: 20200619
  Receipt Date: 20200706
  Transmission Date: 20201103
  Serious: Yes (Death)
  Sender: FDA-Public Use
  Company Number: US-JNJFOC-20200613999

PATIENT
  Age: 68 Year
  Sex: Female

DRUGS (9)
  1. SPRAVATO [Suspect]
     Active Substance: ESKETAMINE
     Indication: DEPRESSION
     Dates: start: 20200305, end: 20200305
  2. SPRAVATO [Suspect]
     Active Substance: ESKETAMINE
     Dates: start: 20200409, end: 20200409
  3. SPRAVATO [Suspect]
     Active Substance: ESKETAMINE
     Dates: start: 20200316, end: 20200316
  4. SPRAVATO [Suspect]
     Active Substance: ESKETAMINE
     Dates: start: 20200323, end: 20200323
  5. SPRAVATO [Suspect]
     Active Substance: ESKETAMINE
     Dates: start: 20200402, end: 20200402
  6. SPRAVATO [Suspect]
     Active Substance: ESKETAMINE
     Dates: start: 20200312, end: 20200312
  7. SPRAVATO [Suspect]
     Active Substance: ESKETAMINE
     Dates: start: 20200413, end: 20200413
  8. SPRAVATO [Suspect]
     Active Substance: ESKETAMINE
     Dates: start: 20200309, end: 20200309
  9. SPRAVATO [Suspect]
     Active Substance: ESKETAMINE
     Dates: start: 20200326, end: 20200326

REACTIONS (2)
  - Drug ineffective [Unknown]
  - Completed suicide [Fatal]

NARRATIVE: CASE EVENT DATE: 202005
